FAERS Safety Report 22640561 (Version 1)
Quarter: 2023Q2

REPORT INFORMATION
  Report Type: Spontaneous
  Country: US (occurrence: US)
  Receive Date: 20230626
  Receipt Date: 20230626
  Transmission Date: 20230721
  Serious: No
  Sender: FDA-Public Use
  Company Number: US-009507513-2306USA000345

PATIENT
  Age: 22 Year
  Sex: Female

DRUGS (2)
  1. INVANZ [Suspect]
     Active Substance: ERTAPENEM SODIUM
     Indication: Endocarditis
     Dosage: UNK
     Route: 042
  2. WARFARIN [Concomitant]
     Active Substance: WARFARIN
     Dosage: UNK

REACTIONS (1)
  - Product use in unapproved indication [Unknown]
